FAERS Safety Report 5503878-3 (Version None)
Quarter: 2007Q4

REPORT INFORMATION
  Report Type: 
  Country: None (occurrence: None)
  Receive Date: 20071101
  Receipt Date: 20071029
  Transmission Date: 20080405
  Serious: Yes (Hospitalization)
  Sender: FDA-Public Use
  Company Number: FR-BRISTOL-MYERS SQUIBB COMPANY-13947635

PATIENT
  Age: 63 Year
  Sex: Female
  Weight: 101 kg

DRUGS (5)
  1. ORENCIA [Suspect]
     Indication: RHEUMATOID ARTHRITIS
     Route: 042
     Dates: start: 20070906, end: 20071004
  2. METHOTREXATE [Suspect]
     Indication: RHEUMATOID ARTHRITIS
     Route: 048
     Dates: start: 20020101
  3. CORTANCYL [Suspect]
     Indication: RHEUMATOID ARTHRITIS
     Route: 048
     Dates: start: 20000101
  4. TAREG [Suspect]
     Indication: HYPERTENSION
     Dosage: 1 TAB PER DAY
     Route: 048
     Dates: start: 20040101
  5. LERCAN [Suspect]
     Indication: HYPERTENSION
     Route: 048

REACTIONS (1)
  - THROMBOPHLEBITIS [None]
